FAERS Safety Report 7213841-2 (Version None)
Quarter: 2011Q1

REPORT INFORMATION
  Report Type: 
  Country: None (occurrence: None)
  Receive Date: 20110106
  Receipt Date: 20110103
  Transmission Date: 20110831
  Serious: Yes (Death)
  Sender: FDA-Public Use
  Company Number: PHHY2011US00597

PATIENT
  Sex: Male

DRUGS (1)
  1. STARLIX [Suspect]
     Dosage: 120 MG, TID

REACTIONS (3)
  - NERVOUSNESS [None]
  - DEATH [None]
  - DIZZINESS [None]
